FAERS Safety Report 5381556-1 (Version None)
Quarter: 2007Q3

REPORT INFORMATION
  Report Type: 
  Country: None (occurrence: None)
  Receive Date: 20070709
  Receipt Date: 20070704
  Transmission Date: 20080115
  Serious: Yes (Hospitalization, Other)
  Sender: FDA-Public Use
  Company Number: AU-AVENTIS-200715294GDDC

PATIENT
  Age: 54 Year
  Sex: Male

DRUGS (14)
  1. LANTUS [Suspect]
     Route: 058
     Dates: start: 20070416
  2. AUTOPEN INSULIN INJECTION PEN [Suspect]
     Route: 058
  3. ACTONEL COMBI [Concomitant]
     Route: 048
  4. ASASANTIN                          /00042901/ [Concomitant]
     Dosage: DOSE: 200MG/25 MG
     Route: 048
  5. CADUET [Concomitant]
     Dosage: DOSE: 10/20
     Route: 048
  6. CELAPRAM [Concomitant]
     Route: 048
  7. LASIX [Concomitant]
     Route: 048
  8. MAGNESIUM ASPARTATE [Concomitant]
     Route: 048
  9. OROXINE [Concomitant]
     Route: 048
  10. PANAMAX [Concomitant]
     Route: 048
  11. STEMETIL                           /00013301/ [Concomitant]
     Route: 048
  12. TEMAZEPAM [Concomitant]
     Route: 048
  13. TRITACE [Concomitant]
     Route: 048
  14. MSM [Concomitant]

REACTIONS (2)
  - ATRIAL FIBRILLATION [None]
  - CONDITION AGGRAVATED [None]
